FAERS Safety Report 20992022 (Version 2)
Quarter: 2022Q3

REPORT INFORMATION
  Report Type: Spontaneous
  Country: US (occurrence: None)
  Receive Date: 20220622
  Receipt Date: 20220714
  Transmission Date: 20221027
  Serious: No
  Sender: FDA-Public Use
  Company Number: 2022A214398

PATIENT
  Sex: Female

DRUGS (1)
  1. BUDESONIDE\FORMOTEROL [Suspect]
     Active Substance: BUDESONIDE\FORMOTEROL
     Indication: Asthma
     Dosage: TWO INHALATIONS TWICE A DAY
     Route: 055

REACTIONS (3)
  - Headache [Unknown]
  - Chest pain [Unknown]
  - Device delivery system issue [Unknown]
